FAERS Safety Report 12305636 (Version 1)
Quarter: 2016Q2

REPORT INFORMATION
  Report Type: Spontaneous
  Country: US (occurrence: US)
  Receive Date: 20160426
  Receipt Date: 20160426
  Transmission Date: 20160815
  Serious: No
  Sender: FDA-Public Use
  Company Number: US-009507513-1604USA013191

PATIENT
  Sex: Female

DRUGS (1)
  1. NUVARING [Suspect]
     Active Substance: ETHINYL ESTRADIOL\ETONOGESTREL
     Dosage: CONCENTRATION: 0.12/0.015/24 MG
     Route: 067
     Dates: start: 2015

REACTIONS (2)
  - Device expulsion [Unknown]
  - No adverse event [Unknown]

NARRATIVE: CASE EVENT DATE: 2016
